FAERS Safety Report 10579057 (Version 1)
Quarter: 2014Q4

REPORT INFORMATION
  Report Type: Spontaneous
  Country: US (occurrence: US)
  Receive Date: 20141112
  Receipt Date: 20141112
  Transmission Date: 20150529
  Serious: No
  Sender: FDA-Public Use
  Company Number: US-009507513-1410USA006993

PATIENT
  Age: 56 Year
  Sex: Male

DRUGS (4)
  1. PEGINTRON [Suspect]
     Active Substance: PEGINTERFERON ALFA-2B
     Indication: HEPATITIS C
     Dosage: ONE SHOT, QW, ROUTE-INJECTION
     Dates: start: 20141010
  2. REBETOL [Suspect]
     Active Substance: RIBAVIRIN
     Route: 048
  3. SOVALDI [Concomitant]
     Active Substance: SOFOSBUVIR
  4. PRINIVIL [Concomitant]
     Active Substance: LISINOPRIL

REACTIONS (4)
  - Influenza like illness [Recovered/Resolved]
  - Headache [Recovered/Resolved]
  - Malaise [Recovered/Resolved]
  - Product quality issue [Unknown]

NARRATIVE: CASE EVENT DATE: 20141011
